FAERS Safety Report 18768250 (Version 4)
Quarter: 2021Q1

REPORT INFORMATION
  Report Type: Report from Study
  Country: US (occurrence: US)
  Receive Date: 20210121
  Receipt Date: 20210303
  Transmission Date: 20210419
  Serious: Yes (Hospitalization, Other)
  Sender: FDA-Public Use
  Company Number: US-JNJFOC-20210105625

PATIENT
  Age: 69 Year
  Sex: Female

DRUGS (1)
  1. OPSUMIT [Suspect]
     Active Substance: MACITENTAN
     Indication: PULMONARY ARTERIAL HYPERTENSION
     Route: 065
     Dates: start: 20201209

REACTIONS (5)
  - Fluid retention [Unknown]
  - Dyspnoea [Not Recovered/Not Resolved]
  - Colon cancer [Unknown]
  - Haemorrhage [Unknown]
  - Memory impairment [Unknown]

NARRATIVE: CASE EVENT DATE: 202101
